FAERS Safety Report 5419390-6 (Version None)
Quarter: 2007Q3

REPORT INFORMATION
  Report Type: 
  Country: None (occurrence: None)
  Receive Date: 20070816
  Receipt Date: 20070816
  Transmission Date: 20080115
  Serious: Yes (Life-Threatening, Hospitalization)
  Sender: FDA-Public Use
  Company Number: None

PATIENT
  Age: 41 Year
  Sex: Male
  Weight: 69.5 kg

DRUGS (2)
  1. DAPSONE [Suspect]
     Dosage: DAPSONE  DAILY  PO
     Route: 048
  2. LEXAPRO [Suspect]
     Dosage: LEXAPRO DAILY PO
     Route: 048

REACTIONS (3)
  - NO THERAPEUTIC RESPONSE [None]
  - STEVENS-JOHNSON SYNDROME [None]
  - TOXIC EPIDERMAL NECROLYSIS [None]
